FAERS Safety Report 6547428-1 (Version None)
Quarter: 2010Q1

REPORT INFORMATION
  Report Type: 
  Country: None (occurrence: None)
  Receive Date: 20100122
  Receipt Date: 20100118
  Transmission Date: 20100710
  Serious: Yes (Death, Hospitalization, Other)
  Sender: FDA-Public Use
  Company Number: PHHY2010BR02634

PATIENT
  Sex: Female

DRUGS (1)
  1. EXELON [Suspect]
     Indication: DEMENTIA ALZHEIMER'S TYPE
     Dosage: 9MG/5CM2, 1 PATCH/DAY
     Route: 062
     Dates: start: 20091023

REACTIONS (10)
  - ACUTE RESPIRATORY FAILURE [None]
  - DEHYDRATION [None]
  - DYSPNOEA [None]
  - HERPES ZOSTER [None]
  - IMMUNODEFICIENCY [None]
  - INFECTION [None]
  - MALNUTRITION [None]
  - METABOLIC DISORDER [None]
  - PNEUMONIA [None]
  - SEPTIC SHOCK [None]
